FAERS Safety Report 9768452 (Version 5)
Quarter: 2014Q1

REPORT INFORMATION
  Report Type: Report from Study
  Country: BE (occurrence: BE)
  Receive Date: 20131217
  Receipt Date: 20140318
  Transmission Date: 20141002
  Serious: Yes (Death, Hospitalization, Other)
  Sender: FDA-Public Use
  Company Number: BE-BAYER-2013-140772

PATIENT
  Age: 59 Year
  Sex: Female
  Weight: 35 kg

DRUGS (4)
  1. REGORAFENIB [Suspect]
     Indication: COLORECTAL CANCER
     Dosage: 160 MG, QD (FOR 3 WEEKS EVERY 4 WEEKS)
     Route: 048
     Dates: start: 20130926, end: 20131112
  2. L THYROXINE [Concomitant]
     Indication: THYROID DISORDER
     Dosage: 25 ?G
     Route: 048
     Dates: start: 20131024
  3. TEMESTA [Concomitant]
     Indication: SLEEP DISORDER
     Dosage: 25 MG
     Route: 048
     Dates: end: 20130925
  4. TRADONAL [Concomitant]
     Indication: PAIN
     Dosage: 50MG DAILY
     Dates: start: 20130320

REACTIONS (4)
  - Hepatic failure [Fatal]
  - General physical health deterioration [Fatal]
  - Dehydration [Recovered/Resolved]
  - Hyponatraemia [Recovered/Resolved]
